FAERS Safety Report 7244355-1 (Version None)
Quarter: 2011Q1

REPORT INFORMATION
  Report Type: 
  Country: None (occurrence: None)
  Receive Date: 20110119
  Receipt Date: 20110119
  Transmission Date: 20110831
  Serious: No
  Sender: FDA-Public Use
  Company Number: None

PATIENT
  Age: 71 Year
  Sex: Female
  Weight: 57.6068 kg

DRUGS (1)
  1. RITUXAN [Suspect]
     Indication: CHRONIC LYMPHOCYTIC LEUKAEMIA
     Dosage: 50MG OCNE IV DRIP
     Route: 041

REACTIONS (4)
  - BACK PAIN [None]
  - RESTLESSNESS [None]
  - FLUSHING [None]
  - FEELING HOT [None]
